FAERS Safety Report 16199428 (Version 2)
Quarter: 2019Q2

REPORT INFORMATION
  Report Type: Spontaneous
  Country: US (occurrence: US)
  Receive Date: 20190415
  Receipt Date: 20190422
  Transmission Date: 20190711
  Serious: No
  Sender: FDA-Public Use
  Company Number: US-009507513-1904USA004748

PATIENT

DRUGS (1)
  1. NOXAFIL [Suspect]
     Active Substance: POSACONAZOLE
     Indication: ANTIFUNGAL PROPHYLAXIS
     Route: 048

REACTIONS (6)
  - Drug intolerance [Unknown]
  - Malabsorption [Unknown]
  - Hepatic function abnormal [Unknown]
  - Fungal disease carrier [Unknown]
  - Product use in unapproved indication [Unknown]
  - Adverse event [Unknown]
